FAERS Safety Report 17014184 (Version 1)
Quarter: 2019Q4

REPORT INFORMATION
  Report Type: Spontaneous
  Country: KR (occurrence: KR)
  Receive Date: 20191111
  Receipt Date: 20191111
  Transmission Date: 20200122
  Serious: Yes (Other)
  Sender: FDA-Public Use
  Company Number: KR-SUN PHARMACEUTICAL INDUSTRIES LTD-2019RR-227089

PATIENT
  Age: 74 Year
  Sex: Male

DRUGS (1)
  1. ALENDRONIC ACID [Suspect]
     Active Substance: ALENDRONIC ACID
     Indication: OSTEOPOROSIS
     Dosage: UNK, TAKEN FOR MORE THAN 5 YEARS
     Route: 065

REACTIONS (2)
  - Sinusitis [Unknown]
  - Osteonecrosis of jaw [Unknown]
